FAERS Safety Report 20729035 (Version 6)
Quarter: 2022Q2

REPORT INFORMATION
  Report Type: Spontaneous
  Country: US (occurrence: US)
  Receive Date: 20220420
  Receipt Date: 20220524
  Transmission Date: 20220720
  Serious: Yes (Hospitalization, Other)
  Sender: FDA-Public Use
  Company Number: US-UNITED THERAPEUTICS-UNT-2022-008358

PATIENT
  Age: 0 Year
  Sex: Female

DRUGS (2)
  1. TYVASO [Suspect]
     Active Substance: TREPROSTINIL
     Indication: Pulmonary arterial hypertension
     Dosage: UNK
     Dates: start: 202203
  2. TYVASO [Suspect]
     Active Substance: TREPROSTINIL
     Dosage: 54 ?G, QID

REACTIONS (4)
  - Malaise [Not Recovered/Not Resolved]
  - Pseudomonas infection [Recovered/Resolved]
  - Vomiting [Recovered/Resolved]
  - Tracheostomy infection [Recovered/Resolved]

NARRATIVE: CASE EVENT DATE: 20220401
